FAERS Safety Report 5116212-8 (Version None)
Quarter: 2006Q3

REPORT INFORMATION
  Report Type: 
  Country: None (occurrence: None)
  Receive Date: 20060927
  Receipt Date: 20060921
  Transmission Date: 20061208
  Serious: Yes (Death, Hospitalization)
  Sender: FDA-Public Use
  Company Number: US-BRISTOL-MYERS SQUIBB COMPANY-13517339

PATIENT
  Age: 51 Year
  Sex: Male

DRUGS (5)
  1. PACLITAXEL [Suspect]
  2. CARBOPLATIN [Suspect]
  3. WARFARIN SODIUM [Concomitant]
     Indication: SUPERIOR VENA CAVAL OCCLUSION
  4. HEPARIN [Concomitant]
     Indication: SUPERIOR VENA CAVAL OCCLUSION
  5. STEROIDS [Concomitant]
     Indication: INFLAMMATION

REACTIONS (1)
  - PNEUMONITIS [None]
